FAERS Safety Report 8415233-7 (Version None)
Quarter: 2012Q2

REPORT INFORMATION
  Report Type: 
  Country: None (occurrence: None)
  Receive Date: 20120606
  Receipt Date: 20120529
  Transmission Date: 20120825
  Serious: Yes (Other)
  Sender: FDA-Public Use
  Company Number: JP-VERTEX PHARMACEUTICALS INC.-AE-2012-002370

PATIENT
  Age: 63 Year
  Sex: Male

DRUGS (18)
  1. ALLOPURINOL [Concomitant]
     Route: 048
     Dates: start: 20120312
  2. LEBARAMINE [Concomitant]
     Route: 048
     Dates: end: 20120226
  3. CLOBETASOL PROPIONATE [Concomitant]
     Route: 061
     Dates: start: 20120212
  4. REBETOL [Concomitant]
     Route: 048
     Dates: start: 20120319, end: 20120416
  5. REBETOL [Concomitant]
     Route: 048
     Dates: start: 20120522, end: 20120528
  6. URSO 250 [Concomitant]
     Route: 048
  7. ALBUMIN TANNATE [Concomitant]
     Route: 048
     Dates: start: 20120213, end: 20120219
  8. TELAVIC (TELAPREVIR) [Suspect]
     Indication: HEPATITIS C
     Route: 048
     Dates: start: 20120210, end: 20120212
  9. REBETOL [Concomitant]
     Indication: HEPATITIS C
     Route: 048
     Dates: start: 20120210, end: 20120213
  10. TELAVIC (TELAPREVIR) [Suspect]
     Route: 048
     Dates: start: 20120305, end: 20120507
  11. URSO 250 [Concomitant]
     Route: 048
     Dates: start: 20120101
  12. FERROUS CITRATE [Concomitant]
     Route: 048
  13. TELAVIC (TELAPREVIR) [Suspect]
     Route: 048
     Dates: start: 20120213, end: 20120213
  14. PROHEPARUM [Concomitant]
     Route: 048
     Dates: start: 20120227
  15. PEGINTFERON ALFA-2B [Concomitant]
     Indication: HEPATITIS C
     Route: 058
     Dates: start: 20120210
  16. REBETOL [Concomitant]
     Route: 048
     Dates: start: 20120227, end: 20120318
  17. REBETOL [Concomitant]
     Route: 048
     Dates: start: 20120417, end: 20120521
  18. MIYA BM [Concomitant]
     Route: 048
     Dates: start: 20120213, end: 20120219

REACTIONS (8)
  - DEHYDRATION [None]
  - RASH [None]
  - MALAISE [None]
  - DECREASED APPETITE [None]
  - ANAEMIA [None]
  - NAUSEA [None]
  - RENAL FAILURE [None]
  - PYREXIA [None]
